FAERS Safety Report 6014698-8 (Version None)
Quarter: 2008Q4

REPORT INFORMATION
  Report Type: 
  Country: None (occurrence: None)
  Receive Date: 20081219
  Receipt Date: 20081217
  Transmission Date: 20090506
  Serious: Yes (Other)
  Sender: FDA-Public Use
  Company Number: US-ASTRAZENECA-2008UW28206

PATIENT
  Age: 509 Month
  Sex: Female
  Weight: 68 kg

DRUGS (8)
  1. SEROQUEL [Suspect]
     Indication: ANXIETY
     Dosage: 25-200MG
     Route: 048
     Dates: start: 20010901, end: 20050527
  2. SEROQUEL [Suspect]
     Indication: SLEEP DISORDER
     Dosage: 25-200MG
     Route: 048
     Dates: start: 20010901, end: 20050527
  3. SEROQUEL [Suspect]
     Indication: AFFECTIVE DISORDER
     Dosage: 25-200MG
     Route: 048
     Dates: start: 20010901, end: 20050527
  4. SEROQUEL [Suspect]
     Indication: MAJOR DEPRESSION
     Dosage: 25-200MG
     Route: 048
     Dates: start: 20010901, end: 20050527
  5. RISPERDAL [Concomitant]
     Dosage: 1-2MG
     Dates: start: 20000519, end: 20020115
  6. BUSPAR [Concomitant]
  7. DESYREL [Concomitant]
  8. KLONOPIN [Concomitant]

REACTIONS (2)
  - DIABETES MELLITUS [None]
  - MYOCARDIAL INFARCTION [None]
